FAERS Safety Report 9114630 (Version 1)
Quarter: 2013Q1

REPORT INFORMATION
  Report Type: Spontaneous
  Country: US (occurrence: US)
  Receive Date: 20130128
  Receipt Date: 20130128
  Transmission Date: 20140127
  Serious: No
  Sender: FDA-Public Use
  Company Number: US-ASTRAZENECA-2012SE95234

PATIENT
  Age: 22 Year
  Sex: Male
  Weight: 81.6 kg

DRUGS (3)
  1. SEROQUEL XR [Suspect]
     Indication: AUTISM
     Route: 048
     Dates: start: 2011
  2. OMEPRAZOLE [Suspect]
     Indication: ACID BASE BALANCE ABNORMAL
     Dosage: UNKNOWN DOSE, DAILY
     Route: 048
     Dates: start: 2010
  3. DIVALPROEX [Concomitant]

REACTIONS (5)
  - Tremor [Unknown]
  - Weight increased [Unknown]
  - Dizziness [Unknown]
  - Dyspnoea [Unknown]
  - Off label use [Unknown]
